FAERS Safety Report 7628995-3 (Version None)
Quarter: 2011Q3

REPORT INFORMATION
  Report Type: 
  Country: None (occurrence: None)
  Receive Date: 20110715
  Receipt Date: 20110630
  Transmission Date: 20111222
  Serious: Yes (Hospitalization)
  Sender: FDA-Public Use
  Company Number: 2011MA008384

PATIENT
  Age: 27 Month
  Sex: Male

DRUGS (1)
  1. DOXAZOSIN MESYLATE [Suspect]
     Dosage: 2 MG; PO
     Route: 048

REACTIONS (3)
  - SINUS TACHYCARDIA [None]
  - ACCIDENTAL EXPOSURE [None]
  - FATIGUE [None]
